FAERS Safety Report 9004048 (Version 1)
Quarter: 2013Q1

REPORT INFORMATION
  Report Type: Spontaneous
  Country: US (occurrence: US)
  Receive Date: 20130109
  Receipt Date: 20130109
  Transmission Date: 20140127
  Serious: No
  Sender: FDA-Public Use
  Company Number: US-009507513-1301USA002191

PATIENT
  Age: 30 Year
  Sex: Female
  Weight: 58.96 kg

DRUGS (4)
  1. IVERMECTIN [Suspect]
     Indication: HOOKWORM INFECTION
     Dosage: 5 DF, QOW
     Route: 048
     Dates: start: 201208, end: 20121107
  2. LEVOTHYROXINE SODIUM [Concomitant]
     Dosage: 0.5 DF, QD
     Route: 048
  3. AMBIEN [Concomitant]
     Dosage: 10 MG, HS, UNK
  4. PROZAC [Concomitant]
     Dosage: 40 MG, QD

REACTIONS (6)
  - Drug ineffective [Unknown]
  - Eye swelling [Unknown]
  - Eye discharge [Unknown]
  - Migraine [Unknown]
  - Eye irritation [Unknown]
  - Skin exfoliation [Unknown]
